FAERS Safety Report 25820192 (Version 2)
Quarter: 2025Q4

REPORT INFORMATION
  Report Type: Spontaneous
  Country: US (occurrence: US)
  Receive Date: 20250919
  Receipt Date: 20251006
  Transmission Date: 20260118
  Serious: No
  Sender: ROCHE
  Company Number: US-ROCHE-10000386357

PATIENT
  Sex: Male
  Weight: 99.79 kg

DRUGS (2)
  1. ACTEMRA [Suspect]
     Active Substance: TOCILIZUMAB
     Indication: Giant cell arteritis
     Dosage: DEFECT QUANTITY: 3, LAST FULL DOSE OF ACTEMRA WAS 20-AUG-2025
     Route: 058
     Dates: start: 202501
  2. PREDNISONE [Concomitant]
     Active Substance: PREDNISONE
     Indication: Giant cell arteritis
     Route: 048

REACTIONS (5)
  - Accidental exposure to product [Unknown]
  - Device issue [Unknown]
  - No adverse event [Unknown]
  - Drug ineffective [Unknown]
  - Underdose [Unknown]
